FAERS Safety Report 6748424-1 (Version None)
Quarter: 2010Q2

REPORT INFORMATION
  Report Type: 
  Country: None (occurrence: None)
  Receive Date: 20100601
  Receipt Date: 20100601
  Transmission Date: 20101027
  Serious: Yes (Life-Threatening, Hospitalization)
  Sender: FDA-Public Use
  Company Number: None

PATIENT
  Age: 3 Month
  Sex: Female
  Weight: 5.8968 kg

DRUGS (1)
  1. CONCENTRATED TYLENOL INFANT DROPS [Suspect]

REACTIONS (1)
  - NO ADVERSE EVENT [None]
